FAERS Safety Report 17245051 (Version 1)
Quarter: 2020Q1

REPORT INFORMATION
  Report Type: Report from Study
  Country: None (occurrence: BR)
  Receive Date: 20200108
  Receipt Date: 20200108
  Transmission Date: 20200409
  Serious: Yes (Other)
  Sender: FDA-Public Use
  Company Number: BR-ABBVIE-20K-020-3218160-00

PATIENT
  Sex: Female

DRUGS (1)
  1. HUMIRA [Suspect]
     Active Substance: ADALIMUMAB
     Indication: RHEUMATOID ARTHRITIS
     Route: 058

REACTIONS (9)
  - Blindness [Unknown]
  - Pain [Unknown]
  - Depressed mood [Unknown]
  - Anxiety [Unknown]
  - Fatigue [Unknown]
  - Alopecia [Unknown]
  - Weight increased [Unknown]
  - Unevaluable event [Unknown]
  - Exercise tolerance decreased [Unknown]
